FAERS Safety Report 7518327-3 (Version None)
Quarter: 2011Q2

REPORT INFORMATION
  Report Type: 
  Country: None (occurrence: None)
  Receive Date: 20110602
  Receipt Date: 20091214
  Transmission Date: 20111010
  Serious: Yes (Hospitalization, Other)
  Sender: FDA-Public Use
  Company Number: US-BAYER-200943166NA

PATIENT
  Age: 64 Year
  Sex: Female
  Weight: 100 kg

DRUGS (36)
  1. TRASYLOL [Suspect]
     Dosage: 200 ML (PUMP PRIME DOSE)
     Route: 042
     Dates: start: 20060325, end: 20060325
  2. METFORMIN HCL [Concomitant]
     Dosage: UNK UNK, QD
     Route: 048
     Dates: start: 20060316
  3. LANTUS [Concomitant]
     Dosage: 20 U, HS
     Route: 058
     Dates: start: 20060322
  4. TRASYLOL [Suspect]
     Dosage: 200 ML (LOADING DOSE)
     Route: 042
     Dates: start: 20060325, end: 20060325
  5. ZESTRIL [Concomitant]
     Route: 048
  6. PLAVIX [Concomitant]
     Dosage: 75 MG, TID
     Route: 048
     Dates: start: 20060316
  7. MAGNESIUM SULFATE [Concomitant]
     Dosage: 100 ML, UNK
     Route: 042
     Dates: start: 20060324, end: 20060324
  8. INSULIN [Concomitant]
     Dosage: 16 UNITS/HR
     Route: 042
     Dates: start: 20060325, end: 20060325
  9. AMIODARONE HCL [Concomitant]
     Dosage: 150 MG, UNK
     Route: 042
     Dates: start: 20060325, end: 20060325
  10. CALCIUM CHLORIDE [Concomitant]
     Dosage: 1 G, UNK
     Route: 042
     Dates: start: 20060325, end: 20060325
  11. FRESH FROZEN PLASMA [Concomitant]
     Dosage: 5 U, UNK
     Route: 042
     Dates: start: 20060325, end: 20060325
  12. TRASYLOL [Suspect]
     Indication: CORONARY ARTERY BYPASS
     Dosage: 1 ML, ONCE (INITIAL DOSE)
     Route: 042
     Dates: start: 20060325, end: 20060325
  13. TRASYLOL [Suspect]
     Dosage: 50 ML/HR (INFUSION DOSE)
     Route: 042
     Dates: start: 20060325, end: 20060325
  14. AVANDIA [Concomitant]
     Dosage: UNK UNK, QD
     Route: 048
  15. NICOTINE [Concomitant]
     Dosage: UNK UNK, QD
     Route: 061
     Dates: start: 20060316
  16. HEPARIN [Concomitant]
     Dosage: 56000 U, UNK
     Route: 042
     Dates: start: 20060325, end: 20060325
  17. SODIUM BICARBONATE [Concomitant]
     Dosage: 150 MEQ, UNK
     Route: 042
     Dates: start: 20060325, end: 20060325
  18. NOVOLOG [Concomitant]
     Dosage: 7 U BEFORE MEALS
     Route: 058
     Dates: start: 20060322
  19. POTASSIUM CHLORIDE [Concomitant]
     Dosage: 40 MEQ, UNK
     Route: 042
     Dates: start: 20060325, end: 20060325
  20. FLEXERIL [Concomitant]
     Dosage: UNK UNK, PRN
     Route: 048
  21. CIPRO [Concomitant]
     Dosage: 400 MG, BID
     Route: 042
     Dates: start: 20060322
  22. DOPAMINE HCL [Concomitant]
     Dosage: UNK
     Route: 042
     Dates: start: 20060325, end: 20060325
  23. EPINEPHRINE [Concomitant]
     Dosage: UNK
     Route: 042
     Dates: start: 20060325, end: 20060325
  24. CEFEPIME [Concomitant]
     Dosage: UNK
     Route: 042
     Dates: start: 20060316, end: 20060322
  25. LOVENOX [Concomitant]
     Dosage: 92 MG, UNK
     Route: 058
     Dates: start: 20060316
  26. FENTANYL [Concomitant]
     Dosage: UNK
     Route: 042
     Dates: start: 20060325, end: 20060325
  27. ALBUMIN (HUMAN) [Concomitant]
     Dosage: 200 ML, UNK
     Route: 042
     Dates: start: 20060325, end: 20060325
  28. MANNITOL [Concomitant]
     Dosage: 12.5 G, UNK
     Route: 042
     Dates: start: 20060325, end: 20060325
  29. RED BLOOD CELLS [Concomitant]
     Dosage: 6 U, UNK
     Route: 042
     Dates: start: 20060325, end: 20060325
  30. AVELOX [Concomitant]
     Dosage: 400 MG, QD
     Route: 042
     Dates: start: 20060321
  31. LOPRESSOR [Concomitant]
     Dosage: 25 MG, QD
     Route: 048
     Dates: start: 20060316
  32. ZOCOR [Concomitant]
     Dosage: 40 MG, QD
     Route: 048
     Dates: start: 20060316
  33. VERSED [Concomitant]
     Dosage: 3 UNK
     Route: 042
     Dates: start: 20060325, end: 20060325
  34. PROTAMINE SULFATE [Concomitant]
     Dosage: 450 MG, UNK
     Route: 042
     Dates: start: 20060325, end: 20060325
  35. PLATELETS [Concomitant]
     Dosage: 2 U, UNK
     Route: 042
     Dates: start: 20060325, end: 20060325
  36. MAGNESIUM SULFATE [Concomitant]
     Dosage: 4 G, UNK
     Dates: start: 20060325

REACTIONS (10)
  - ANXIETY [None]
  - PAIN [None]
  - DEPRESSION [None]
  - CARDIOGENIC SHOCK [None]
  - MYOCARDIAL INFARCTION [None]
  - RENAL FAILURE [None]
  - INJURY [None]
  - ANHEDONIA [None]
  - UNEVALUABLE EVENT [None]
  - FEAR [None]
